FAERS Safety Report 5847500-5 (Version None)
Quarter: 2008Q3

REPORT INFORMATION
  Report Type: 
  Country: None (occurrence: None)
  Receive Date: 20080814
  Receipt Date: 20080729
  Transmission Date: 20090109
  Serious: Yes (Disabling)
  Sender: FDA-Public Use
  Company Number: 8035292

PATIENT

DRUGS (1)
  1. XYZAL [Suspect]

REACTIONS (2)
  - ABASIA [None]
  - LETHARGY [None]
